FAERS Safety Report 6996507-3 (Version None)
Quarter: 2010Q3

REPORT INFORMATION
  Report Type: 
  Country: None (occurrence: None)
  Receive Date: 20100918
  Receipt Date: 20090408
  Transmission Date: 20110219
  Serious: Yes (Other)
  Sender: FDA-Public Use
  Company Number: US-WYE-H08876909

PATIENT
  Sex: Male
  Weight: 122.58 kg

DRUGS (1)
  1. EFFEXOR XR [Suspect]
     Indication: DEPRESSION
     Route: 048
     Dates: start: 20080901, end: 20090301

REACTIONS (3)
  - ABNORMAL DREAMS [None]
  - CATARACT [None]
  - VISUAL IMPAIRMENT [None]
